FAERS Safety Report 6180302-1 (Version None)
Quarter: 2009Q2

REPORT INFORMATION
  Report Type: 
  Country: None (occurrence: None)
  Receive Date: 20090504
  Receipt Date: 20090504
  Transmission Date: 20091009
  Serious: Yes (Hospitalization)
  Sender: FDA-Public Use
  Company Number: None

PATIENT
  Sex: Female
  Weight: 78 kg

DRUGS (17)
  1. CYCLOPHOSPHAMIDE [Suspect]
     Dosage: 1298 MG
  2. DOXIL [Suspect]
     Dosage: 69 MG
  3. RITUXIMAB (MOAB C2B8 ANTI CD20, CHIMERIC) [Suspect]
     Dosage: 649 MG
  4. ACULAR KETOROLAC [Concomitant]
  5. ALISKIREN [Concomitant]
  6. AMLODIPINE [Concomitant]
  7. AZOPT [Concomitant]
  8. DARVON [Concomitant]
  9. INSULIN GLARGINE [Concomitant]
  10. INSULIN LISPRO [Concomitant]
  11. LEVOTHYROXINE SODIUM [Concomitant]
  12. LISINOPRIL [Concomitant]
  13. MEVACOR [Concomitant]
  14. MAALOX [Concomitant]
  15. METFORMIN HCL [Concomitant]
  16. OMEPRAZOLE [Concomitant]
  17. OXYBUTRIN CHLORIDE [Concomitant]

REACTIONS (12)
  - ANAEMIA [None]
  - CARDIAC FAILURE CONGESTIVE [None]
  - CULTURE URINE POSITIVE [None]
  - ENTEROCOCCAL INFECTION [None]
  - GENERAL PHYSICAL HEALTH DETERIORATION [None]
  - LUNG INFILTRATION [None]
  - MALNUTRITION [None]
  - MENTAL STATUS CHANGES [None]
  - PNEUMONIA [None]
  - PYREXIA [None]
  - RENAL FAILURE ACUTE [None]
  - STAPHYLOCOCCAL INFECTION [None]
